FAERS Safety Report 5395449-7 (Version None)
Quarter: 2007Q3

REPORT INFORMATION
  Report Type: 
  Country: None (occurrence: None)
  Receive Date: 20070724
  Receipt Date: 20070717
  Transmission Date: 20080115
  Serious: Yes (Hospitalization)
  Sender: FDA-Public Use
  Company Number: A0664592A

PATIENT
  Age: 84 Year
  Sex: Male

DRUGS (11)
  1. COREG [Suspect]
     Dosage: 12.5MG TWICE PER DAY
     Route: 048
     Dates: start: 20070130
  2. RANEXA [Suspect]
     Dates: start: 20070202, end: 20070101
  3. NITROGLYCERIN [Concomitant]
  4. COUMADIN [Concomitant]
  5. ACIPHEX [Concomitant]
  6. HYZAAR [Concomitant]
  7. ALLOPURINOL [Concomitant]
  8. COUMADIN [Concomitant]
  9. LORAZEPAM [Concomitant]
  10. CATAPRES [Concomitant]
  11. UNSPECIFIED MEDICATION [Concomitant]

REACTIONS (5)
  - LEUKAEMIA [None]
  - NONSPECIFIC REACTION [None]
  - PLATELET COUNT DECREASED [None]
  - RENAL FAILURE [None]
  - WHITE BLOOD CELL COUNT DECREASED [None]
